FAERS Safety Report 10638683 (Version 2)
Quarter: 2014Q4

REPORT INFORMATION
  Report Type: Report from Study
  Country: JP (occurrence: JP)
  Receive Date: 20141208
  Receipt Date: 20141223
  Transmission Date: 20150529
  Serious: Yes (Other)
  Sender: FDA-Public Use
  Company Number: JP-BAYER-2014-177858

PATIENT
  Age: 54 Year
  Sex: Male

DRUGS (7)
  1. NEXAVAR [Suspect]
     Active Substance: SORAFENIB
     Indication: FOLLICULAR THYROID CANCER
     Dosage: 400MG/DAY
     Route: 048
     Dates: start: 20140901, end: 20140909
  2. NEXAVAR [Suspect]
     Active Substance: SORAFENIB
     Indication: FOLLICULAR THYROID CANCER
     Dosage: 400MG/DAY
     Route: 048
     Dates: start: 20141020
  3. THYRADIN-S [Concomitant]
     Active Substance: LEVOTHYROXINE
     Indication: FOLLICULAR THYROID CANCER
     Route: 048
  4. RINDERON VG [Concomitant]
     Active Substance: BETAMETHASONE VALERATE\GENTAMICIN SULFATE
     Indication: DRUG TOXICITY PROPHYLAXIS
     Dosage: UNK
     Route: 061
     Dates: start: 20140804
  5. NEXAVAR [Suspect]
     Active Substance: SORAFENIB
     Indication: FOLLICULAR THYROID CANCER
     Dosage: 800MG/DAY
     Route: 048
     Dates: start: 20140804, end: 20140818
  6. HIRUDOID [Concomitant]
     Active Substance: GLYCOSAMINOGLYCANS
     Indication: DRUG TOXICITY PROPHYLAXIS
     Dosage: UNK
     Route: 061
     Dates: start: 20140804
  7. KERATINAMIN [Concomitant]
     Active Substance: UREA
     Indication: DRUG TOXICITY PROPHYLAXIS
     Dosage: UNK
     Route: 061
     Dates: start: 20140804

REACTIONS (11)
  - Stomatitis [Recovered/Resolved]
  - Hypocalcaemia [None]
  - Palmar-plantar erythrodysaesthesia syndrome [Recovered/Resolved]
  - Blood creatine phosphokinase increased [Recovered/Resolved]
  - Tumour lysis syndrome [None]
  - Alopecia [Not Recovered/Not Resolved]
  - Blood lactate dehydrogenase increased [Recovered/Resolved]
  - C-reactive protein increased [Recovered/Resolved]
  - Myalgia [Recovered/Resolved]
  - Nasopharyngitis [Recovered/Resolved]
  - Rash [Recovered/Resolved]

NARRATIVE: CASE EVENT DATE: 20140807
